FAERS Safety Report 17872448 (Version 1)
Quarter: 2020Q2

REPORT INFORMATION
  Report Type: Spontaneous
  Country: CN (occurrence: CN)
  Receive Date: 20200608
  Receipt Date: 20200608
  Transmission Date: 20200714
  Serious: Yes (Other)
  Sender: FDA-Public Use
  Company Number: CN-ROCHE-2616925

PATIENT
  Age: 64 Year
  Sex: Female

DRUGS (13)
  1. CRIZOTINIB [Concomitant]
     Active Substance: CRIZOTINIB
     Indication: LUNG ADENOCARCINOMA STAGE IV
  2. NEDAPLATIN [Concomitant]
     Active Substance: NEDAPLATIN
     Indication: METASTASES TO LYMPH NODES
  3. AVASTIN [Suspect]
     Active Substance: BEVACIZUMAB
     Indication: LUNG ADENOCARCINOMA STAGE IV
     Route: 065
     Dates: start: 20190724
  4. CRIZOTINIB [Concomitant]
     Active Substance: CRIZOTINIB
     Indication: METASTASES TO LYMPH NODES
  5. AVASTIN [Suspect]
     Active Substance: BEVACIZUMAB
     Indication: METASTASES TO LYMPH NODES
  6. LOBAPLATIN [Concomitant]
     Active Substance: LOBAPLATIN
     Indication: METASTASES TO LYMPH NODES
  7. NEDAPLATIN [Concomitant]
     Active Substance: NEDAPLATIN
     Indication: LUNG ADENOCARCINOMA STAGE IV
     Route: 065
     Dates: start: 20190605
  8. GEFITINIB. [Concomitant]
     Active Substance: GEFITINIB
     Indication: METASTASES TO LYMPH NODES
  9. PACLITAXEL ALBUMIN [Concomitant]
     Active Substance: PACLITAXEL
     Indication: LUNG ADENOCARCINOMA STAGE IV
     Route: 065
     Dates: start: 20190605
  10. LOBAPLATIN [Concomitant]
     Active Substance: LOBAPLATIN
     Indication: LUNG ADENOCARCINOMA STAGE IV
     Route: 065
     Dates: start: 20190724
  11. GEFITINIB. [Concomitant]
     Active Substance: GEFITINIB
     Indication: LUNG ADENOCARCINOMA STAGE IV
  12. PACLITAXEL ALBUMIN [Concomitant]
     Active Substance: PACLITAXEL
     Indication: METASTASES TO LYMPH NODES
     Route: 065
  13. ETAMSYLATE [Concomitant]
     Active Substance: ETHAMSYLATE
     Indication: HAEMOSTASIS

REACTIONS (1)
  - Bone marrow failure [Unknown]
